FAERS Safety Report 8011100-1 (Version None)
Quarter: 2011Q4

REPORT INFORMATION
  Report Type: 
  Country: None (occurrence: None)
  Receive Date: 20111228
  Receipt Date: 20111221
  Transmission Date: 20120403
  Serious: Yes (Hospitalization)
  Sender: FDA-Public Use
  Company Number: FR-ROCHE-1024381

PATIENT
  Sex: Male

DRUGS (5)
  1. AVASTIN [Suspect]
     Indication: RENAL CANCER
     Route: 042
     Dates: start: 20111108, end: 20111108
  2. INTERFERON ALFA [Suspect]
     Indication: RENAL CANCER
     Route: 042
     Dates: start: 20111024, end: 20111121
  3. PREVISCAN (FRANCE) [Concomitant]
     Route: 048
  4. ALLOPURINOL [Concomitant]
     Route: 048
  5. NEBIVOLOL HCL [Concomitant]
     Indication: HYPERTENSION
     Route: 048

REACTIONS (1)
  - POSTERIOR REVERSIBLE ENCEPHALOPATHY SYNDROME [None]
